FAERS Safety Report 17170617 (Version 1)
Quarter: 2019Q4

REPORT INFORMATION
  Report Type: Spontaneous
  Country: SE (occurrence: SE)
  Receive Date: 20191218
  Receipt Date: 20191218
  Transmission Date: 20200122
  Serious: Yes (Other)
  Sender: FDA-Public Use
  Company Number: NVSC2019SE071121

PATIENT
  Age: 60 Year
  Sex: Male
  Weight: 110 kg

DRUGS (17)
  1. PROPYDERM [Concomitant]
     Indication: PRODUCT USED FOR UNKNOWN INDICATION
     Dosage: 1 APPLICERING VID BEHOV
     Route: 065
  2. VISCOTEARS [Concomitant]
     Active Substance: CARBOMER
     Indication: PRODUCT USED FOR UNKNOWN INDICATION
     Dosage: 1 DROPPE X4 VID BEHOV
     Route: 065
  3. ATORVASTATIN MYLAN [Concomitant]
     Active Substance: ATORVASTATIN
     Indication: PRODUCT USED FOR UNKNOWN INDICATION
     Dosage: 40 MG, QD
     Route: 065
  4. BISOPROLOL ACCORD [Concomitant]
     Active Substance: BISOPROLOL
     Indication: PRODUCT USED FOR UNKNOWN INDICATION
     Dosage: 10 MG, QD
     Route: 065
  5. ELOCON [Concomitant]
     Active Substance: MOMETASONE FUROATE
     Indication: PRODUCT USED FOR UNKNOWN INDICATION
     Dosage: ENLIGT S?RSKILD ORDINATION
     Route: 065
  6. ENTRESTO [Suspect]
     Active Substance: SACUBITRIL\VALSARTAN
     Indication: PRODUCT USED FOR UNKNOWN INDICATION
     Dosage: 2 DF, QD (INITIALT 49 MG/51 MG 1+1)
     Route: 065
     Dates: start: 20190524
  7. PANODIL [Concomitant]
     Active Substance: ACETAMINOPHEN
     Indication: PRODUCT USED FOR UNKNOWN INDICATION
     Dosage: 1-2 TABLETTER VID BEHOV MAX 8 TABLETTER PER DYGN
     Route: 065
  8. SPIRONOLACTON ACCORD [Concomitant]
     Active Substance: SPIRONOLACTONE
     Indication: PRODUCT USED FOR UNKNOWN INDICATION
     Dosage: 25 MG, QD
     Route: 065
     Dates: end: 201909
  9. ENTRESTO [Suspect]
     Active Substance: SACUBITRIL\VALSARTAN
     Dosage: 2 OT, QD (49 MG/51 MG 1+2 )
     Route: 065
     Dates: start: 201906
  10. NITROLINGUAL [Concomitant]
     Active Substance: NITROGLYCERIN
     Indication: PRODUCT USED FOR UNKNOWN INDICATION
     Dosage: 1-2 DOSER VID BEHOV
     Route: 065
  11. AMITRIPTYLIN ABCUR [Concomitant]
     Active Substance: AMITRIPTYLINE HYDROCHLORIDE
     Indication: PRODUCT USED FOR UNKNOWN INDICATION
     Dosage: 1 OT, QD (1-3 TABLETTER TILL NATTEN)
     Route: 065
  12. SIFROL [Concomitant]
     Active Substance: PRAMIPEXOLE
     Indication: PRODUCT USED FOR UNKNOWN INDICATION
     Dosage: ENLIGT S?RSKILD ORDINATION
     Route: 065
  13. ACETYLSALICYLSYRA [Concomitant]
     Indication: PRODUCT USED FOR UNKNOWN INDICATION
     Route: 065
  14. ENTRESTO [Suspect]
     Active Substance: SACUBITRIL\VALSARTAN
     Dosage: 2 DF, QD (97 MG/103 MG 1 PLUS 1)
     Route: 065
     Dates: start: 201909
  15. FLUKLOXACILLIN MEDA [Concomitant]
     Indication: PRODUCT USED FOR UNKNOWN INDICATION
     Dosage: 3 G, QD
     Route: 065
  16. OXYCODONE G.L. [Concomitant]
     Indication: PRODUCT USED FOR UNKNOWN INDICATION
     Dosage: 1 TABLETT VID BEHOV, MAX 6 TABLETTER PER DYGN
     Route: 065
  17. ZOPICLON STADA [Concomitant]
     Active Substance: ZOPICLONE
     Indication: PRODUCT USED FOR UNKNOWN INDICATION
     Dosage: 0,5-1 TABLETT TILL NATTEN VID BEHOV
     Route: 065

REACTIONS (1)
  - Hyperglycaemia [Unknown]

NARRATIVE: CASE EVENT DATE: 20190716
